FAERS Safety Report 9797917 (Version 1)
Quarter: 2014Q1

REPORT INFORMATION
  Report Type: Spontaneous
  Country: US (occurrence: US)
  Receive Date: 20140106
  Receipt Date: 20140106
  Transmission Date: 20141002
  Serious: No
  Sender: FDA-Public Use
  Company Number: US-B.I. PHARMACEUTICALS,INC./RIDGEFIELD-2013-BI-43992BP

PATIENT
  Age: 83 Year
  Sex: Female
  Weight: 78 kg

DRUGS (3)
  1. COMBIVENT [Suspect]
     Indication: CHRONIC OBSTRUCTIVE PULMONARY DISEASE
     Dosage: STRENGTH: 18 MCG / 103 MCG; DAILY DOSE: 144 MCG/824MCG
     Route: 055
     Dates: start: 2008, end: 20131225
  2. PRILOSEC [Concomitant]
     Indication: PANCREATITIS
     Dosage: 20 MG
     Route: 048
     Dates: start: 2011
  3. SYNTHROID [Concomitant]
     Indication: THYROIDECTOMY
     Dosage: 112 MCG
     Route: 048
     Dates: start: 1993

REACTIONS (2)
  - Cough [Not Recovered/Not Resolved]
  - Pulmonary congestion [Not Recovered/Not Resolved]
